FAERS Safety Report 16071207 (Version 1)
Quarter: 2019Q1

REPORT INFORMATION
  Report Type: Spontaneous
  Country: US (occurrence: US)
  Receive Date: 20190314
  Receipt Date: 20190314
  Transmission Date: 20190418
  Serious: No
  Sender: FDA-Public Use
  Company Number: US-PFIZER INC-2019103557

PATIENT
  Age: 61 Year
  Sex: Male

DRUGS (1)
  1. EUCRISA [Suspect]
     Active Substance: CRISABOROLE
     Dosage: UNK, APPLIED TO AFFECTED AREAS ONCE TO TWICE A DAY AS NEEDED
     Dates: start: 201902

REACTIONS (1)
  - Rash [Unknown]
